FAERS Safety Report 7423279 (Version 4)
Quarter: 2012Q4

REPORT INFORMATION
  Report Type: 
  Country: US (occurrence: US)
  Receive Date: 20100617
  Receipt Date: 20121015
  Transmission Date: 20130627
  Serious: Yes (Hospitalization, Other)
  Sender: FDA-Public Use
  Company Number: PHHY2010US34334

PATIENT
  Age: 85 None
  Sex: Female

DRUGS (10)
  1. GLEEVEC [Suspect]
     Indication: CHRONIC MYELOID LEUKAEMIA
     Dosage: 400 mg, daily
     Dates: start: 200705
  2. GLEEVEC [Suspect]
     Dosage: 400 mg, daily
     Route: 048
     Dates: start: 20110811
  3. IRON [Concomitant]
  4. NORVASC [Concomitant]
  5. SERTRALINE [Concomitant]
  6. SIMVASTATIN [Concomitant]
  7. XANAX [Concomitant]
  8. AMBIEN [Concomitant]
  9. CALTRATE WITH VITAMIN D [Concomitant]
  10. HYDROCODONE [Concomitant]

REACTIONS (14)
  - Dementia Alzheimer^s type [Unknown]
  - Quality of life decreased [Unknown]
  - Glomerular filtration rate decreased [Unknown]
  - Stress [Unknown]
  - Kyphosis [Unknown]
  - Crying [Unknown]
  - Rotator cuff syndrome [Unknown]
  - Hypokinesia [Unknown]
  - Haemoglobin decreased [Unknown]
  - Anxiety [Unknown]
  - Chills [Unknown]
  - Fatigue [Unknown]
  - Dizziness [Unknown]
  - Aggression [Unknown]
